FAERS Safety Report 10651393 (Version 1)
Quarter: 2014Q4

REPORT INFORMATION
  Report Type: Spontaneous
  Country: DE (occurrence: None)
  Receive Date: 20141210
  Receipt Date: 20141210
  Transmission Date: 20150529
  Serious: Yes (Disabling)
  Sender: FDA-Public Use
  Company Number: DE-TORRENT-00003333

PATIENT
  Sex: Female

DRUGS (1)
  1. QUETIAPINE (INN:QUETIAPINE) [Suspect]
     Active Substance: QUETIAPINE
     Indication: AGITATION
     Dates: start: 201306, end: 201403

REACTIONS (3)
  - Fall [None]
  - Respiration abnormal [None]
  - Spastic paralysis [None]
